FAERS Safety Report 8973945 (Version 1)
Quarter: 2012Q4

REPORT INFORMATION
  Report Type: 
  Country: AR (occurrence: AR)
  Receive Date: 20121218
  Receipt Date: 20121218
  Transmission Date: 20130627
  Serious: Yes (Other)
  Sender: FDA-Public Use
  Company Number: PHHY2012AR116606

PATIENT
  Sex: Male

DRUGS (1)
  1. DIOVAN [Suspect]
     Indication: HYPERTENSION
     Dosage: 160 mg, dail
     Route: 048

REACTIONS (3)
  - Chondropathy [Not Recovered/Not Resolved]
  - Abasia [Not Recovered/Not Resolved]
  - Hypertension [Recovered/Resolved]
